FAERS Safety Report 4469969-3 (Version None)
Quarter: 2004Q3

REPORT INFORMATION
  Report Type: 
  Country: None (occurrence: None)
  Receive Date: 20040920
  Receipt Date: 20040621
  Transmission Date: 20050211
  Serious: No
  Sender: FDA-Public Use
  Company Number: A-US2004-06653

PATIENT
  Age: 17 Year
  Sex: Female

DRUGS (4)
  1. TRACLEER [Suspect]
     Indication: PULMONARY HYPERTENSION
     Dosage: SEE IMAGE
     Route: 048
     Dates: start: 20040501, end: 20040601
  2. TRACLEER [Suspect]
     Indication: PULMONARY HYPERTENSION
     Dosage: SEE IMAGE
     Route: 048
     Dates: start: 20040601
  3. DIGOXIN [Concomitant]
  4. COUMADIN [Concomitant]

REACTIONS (2)
  - RASH ERYTHEMATOUS [None]
  - RASH PRURITIC [None]
